FAERS Safety Report 24957011 (Version 1)
Quarter: 2025Q1

REPORT INFORMATION
  Report Type: Spontaneous
  Country: FR (occurrence: FR)
  Receive Date: 20250211
  Receipt Date: 20250211
  Transmission Date: 20250409
  Serious: Yes (Other)
  Sender: INTERCHEM
  Company Number: FR-AFSSAPS-NT2024000427

PATIENT
  Age: 3 Year
  Sex: Female

DRUGS (20)
  1. DEXMEDETOMIDINE HYDROCHLORIDE [Suspect]
     Active Substance: DEXMEDETOMIDINE HYDROCHLORIDE
     Indication: Sedation
     Dosage: UNK, UNK, 1 UG/KG,1 HR
     Route: 065
     Dates: start: 20240318, end: 20240401
  2. BACTRIM [Suspect]
     Active Substance: SULFAMETHOXAZOLE\TRIMETHOPRIM
     Indication: Antibiotic prophylaxis
     Route: 065
     Dates: start: 20240322, end: 202404
  3. VALGANCICLOVIR HYDROCHLORIDE [Suspect]
     Active Substance: VALGANCICLOVIR HYDROCHLORIDE
     Indication: Antibiotic prophylaxis
     Route: 065
     Dates: start: 20240322, end: 202404
  4. KETAMINE [Suspect]
     Active Substance: KETAMINE
     Indication: Sedation
     Dosage: 1 MG/KG, QD
     Route: 065
     Dates: start: 20240322, end: 20240402
  5. KETAMINE [Suspect]
     Active Substance: KETAMINE
     Dates: start: 20240331
  6. FUROSEMIDE [Suspect]
     Active Substance: FUROSEMIDE
     Indication: Diuretic therapy
     Dosage: 2 MG/KG, QD
     Route: 065
     Dates: start: 20240325, end: 202404
  7. HEPARIN SODIUM [Suspect]
     Active Substance: HEPARIN SODIUM
     Indication: Anticoagulant therapy
     Dosage: 4 IU/KG, QH
     Route: 065
     Dates: start: 20240324, end: 202404
  8. TACROLIMUS [Concomitant]
     Active Substance: TACROLIMUS
     Indication: Product used for unknown indication
     Route: 065
     Dates: start: 20240315
  9. TACROLIMUS [Concomitant]
     Active Substance: TACROLIMUS
     Route: 065
  10. TACROLIMUS [Concomitant]
     Active Substance: TACROLIMUS
     Dosage: UNK UNK, Q12H
     Route: 065
  11. TACROLIMUS [Concomitant]
     Active Substance: TACROLIMUS
     Route: 065
  12. TACROLIMUS [Concomitant]
     Active Substance: TACROLIMUS
     Route: 065
  13. TACROLIMUS [Concomitant]
     Active Substance: TACROLIMUS
     Route: 065
     Dates: start: 20240325
  14. TACROLIMUS [Concomitant]
     Active Substance: TACROLIMUS
     Route: 065
     Dates: start: 20240326
  15. TACROLIMUS [Concomitant]
     Active Substance: TACROLIMUS
     Route: 065
     Dates: start: 20240329
  16. TACROLIMUS [Concomitant]
     Active Substance: TACROLIMUS
     Route: 065
     Dates: start: 20240331
  17. INTERFERON ALFA NOS [Concomitant]
     Active Substance: INTERFERON ALFA-2A OR INTERFERON ALFA-2B
     Indication: Product used for unknown indication
     Route: 065
  18. URSODIOL [Concomitant]
     Active Substance: URSODIOL
     Indication: Product used for unknown indication
     Route: 065
  19. SODIUM BICARBONATE [Concomitant]
     Active Substance: SODIUM BICARBONATE
     Indication: Product used for unknown indication
     Route: 065
  20. AMLODIPINE [Concomitant]
     Active Substance: AMLODIPINE BESYLATE
     Indication: Product used for unknown indication
     Route: 065

REACTIONS (2)
  - Cholestasis [Recovering/Resolving]
  - Product administered to patient of inappropriate age [Unknown]

NARRATIVE: CASE EVENT DATE: 20240318
